FAERS Safety Report 5377989-X (Version None)
Quarter: 2007Q2

REPORT INFORMATION
  Report Type: 
  Country: None (occurrence: None)
  Receive Date: 20070629
  Receipt Date: 20070620
  Transmission Date: 20071010
  Serious: Yes (Hospitalization)
  Sender: FDA-Public Use
  Company Number: 163-21880-07010070

PATIENT
  Age: 69 Year
  Sex: Male

DRUGS (11)
  1. REVLIMID [Suspect]
     Indication: MULTIPLE MYELOMA
     Dosage: 25 MG, 1 IN 1 D, ORAL
     Route: 048
     Dates: start: 20060914
  2. REVLIMID [Suspect]
  3. SYNTHROID [Concomitant]
  4. PLAVIX [Concomitant]
  5. SOTALOL HCL [Concomitant]
  6. POTASSIUM (POTASSIUM) [Concomitant]
  7. GABAPENTIN [Concomitant]
  8. ARANESP [Concomitant]
  9. CARAFATE [Concomitant]
  10. NEXIUM [Concomitant]
  11. IRON (IRON) [Concomitant]

REACTIONS (7)
  - BLOOD TEST ABNORMAL [None]
  - DIARRHOEA [None]
  - DRY SKIN [None]
  - GASTROINTESTINAL ULCER HAEMORRHAGE [None]
  - HEADACHE [None]
  - NASOPHARYNGITIS [None]
  - PRURITUS [None]
